FAERS Safety Report 8323116 (Version 4)
Quarter: 2012Q4

REPORT INFORMATION
  Report Type: 
  Country: DE (occurrence: DE)
  Receive Date: 20120105
  Receipt Date: 20121016
  Transmission Date: 20130627
  Serious: Yes (Other)
  Sender: FDA-Public Use
  Company Number: DE-GLAXOSMITHKLINE-D0073977A

PATIENT
  Age: 31 Year
  Sex: Female

DRUGS (1)
  1. ATMADISC [Suspect]
     Indication: ASTHMA
     Route: 055
     Dates: start: 20111214, end: 20111226

REACTIONS (5)
  - Gestational diabetes [Unknown]
  - Lactation disorder [Unknown]
  - Live birth [Unknown]
  - Exposure during pregnancy [Unknown]
  - Caesarean section [None]
